FAERS Safety Report 7723827-7 (Version None)
Quarter: 2011Q3

REPORT INFORMATION
  Report Type: 
  Country: None (occurrence: None)
  Receive Date: 20110901
  Receipt Date: 20110825
  Transmission Date: 20111222
  Serious: Yes (Other)
  Sender: FDA-Public Use
  Company Number: US-JNJFOC-20110811650

PATIENT
  Sex: Female
  Weight: 74.84 kg

DRUGS (2)
  1. REMICADE [Suspect]
     Indication: RHEUMATOID ARTHRITIS
     Route: 042
     Dates: start: 20110317
  2. METHOTREXATE [Concomitant]
     Indication: RHEUMATOID ARTHRITIS
     Route: 048
     Dates: start: 20110101

REACTIONS (8)
  - PAIN [None]
  - TRICUSPID VALVE INCOMPETENCE [None]
  - ARTHRALGIA [None]
  - HYPERSENSITIVITY [None]
  - MITRAL VALVE INCOMPETENCE [None]
  - TENDON DISORDER [None]
  - MALAISE [None]
  - FATIGUE [None]
